FAERS Safety Report 19512399 (Version 3)
Quarter: 2021Q3

REPORT INFORMATION
  Report Type: Spontaneous
  Country: US (occurrence: US)
  Receive Date: 20210709
  Receipt Date: 20210907
  Transmission Date: 20211014
  Serious: Yes (Hospitalization, Other)
  Sender: FDA-Public Use
  Company Number: US-SAOL THERAPEUTICS-2021SAO00229

PATIENT
  Age: 51 Year
  Sex: Female

DRUGS (1)
  1. LIORESAL [Suspect]
     Active Substance: BACLOFEN
     Indication: MUSCLE SPASTICITY
     Dosage: 83 ?G, \DAY
     Route: 037

REACTIONS (7)
  - Implant site extravasation [Recovering/Resolving]
  - Balance disorder [Recovered/Resolved]
  - Device physical property issue [Recovered/Resolved]
  - Drug withdrawal syndrome [Unknown]
  - Implant site swelling [Recovering/Resolving]
  - Therapeutic product effect decreased [Recovered/Resolved]
  - Fall [Recovered/Resolved]

NARRATIVE: CASE EVENT DATE: 2021
